FAERS Safety Report 16924105 (Version 15)
Quarter: 2020Q2

REPORT INFORMATION
  Report Type: Spontaneous
  Country: CA (occurrence: CA)
  Receive Date: 20191016
  Receipt Date: 20200630
  Transmission Date: 20200713
  Serious: Yes (Hospitalization, Other)
  Sender: FDA-Public Use
  Company Number: CA-PFIZER INC-2019440780

PATIENT
  Age: 61 Year
  Sex: Male

DRUGS (12)
  1. XELJANZ [Suspect]
     Active Substance: TOFACITINIB CITRATE
     Indication: COLITIS ULCERATIVE
     Dosage: 10 MG, TWICE A DAY
     Route: 048
     Dates: start: 20190921, end: 20191016
  2. LYRICA [Concomitant]
     Active Substance: PREGABALIN
     Indication: COLITIS ULCERATIVE
     Dosage: UNK
     Route: 065
  3. CRESTOR [Concomitant]
     Active Substance: ROSUVASTATIN CALCIUM
     Indication: COLITIS ULCERATIVE
     Dosage: UNK
     Route: 065
  4. VITAMIN D [Concomitant]
     Active Substance: VITAMIN D NOS
     Indication: COLITIS ULCERATIVE
     Dosage: UNK
  5. XELJANZ [Suspect]
     Active Substance: TOFACITINIB CITRATE
     Dosage: 10 MG, TWICE A DAY
     Route: 048
     Dates: start: 20200625
  6. PARACETAMOL [Concomitant]
     Active Substance: ACETAMINOPHEN
     Indication: COLITIS ULCERATIVE
     Dosage: UNK
     Route: 065
  7. XELJANZ [Suspect]
     Active Substance: TOFACITINIB CITRATE
     Dosage: 10 MG, TWICE A DAY
     Route: 048
  8. CORTIMENT [Concomitant]
     Indication: COLITIS ULCERATIVE
     Dosage: UNK
     Route: 065
  9. XELJANZ [Suspect]
     Active Substance: TOFACITINIB CITRATE
     Dosage: 10 MG, TWICE A DAY
     Route: 048
     Dates: start: 20191104, end: 202003
  10. XELJANZ [Suspect]
     Active Substance: TOFACITINIB CITRATE
     Dosage: 10 MG, TWICE A DAY
     Route: 048
     Dates: start: 20200316, end: 20200612
  11. XELJANZ [Suspect]
     Active Substance: TOFACITINIB CITRATE
     Dosage: 5 MG, TWICE A DAY
     Route: 048
  12. SYNTHROID [Concomitant]
     Active Substance: LEVOTHYROXINE SODIUM
     Indication: COLITIS ULCERATIVE
     Dosage: UNK
     Route: 065

REACTIONS (18)
  - Arthropathy [Not Recovered/Not Resolved]
  - Intervertebral disc degeneration [Unknown]
  - Peripheral swelling [Not Recovered/Not Resolved]
  - Infection [Not Recovered/Not Resolved]
  - Accident [Unknown]
  - Diarrhoea [Unknown]
  - Metastases to bone [Unknown]
  - Prostate cancer [Unknown]
  - Pollakiuria [Unknown]
  - Dysuria [Not Recovered/Not Resolved]
  - Prostatic specific antigen increased [Unknown]
  - Nerve compression [Unknown]
  - Gait disturbance [Unknown]
  - Hernia [Unknown]
  - Haematochezia [Unknown]
  - Pain in extremity [Not Recovered/Not Resolved]
  - Intervertebral disc protrusion [Unknown]
  - Back disorder [Unknown]

NARRATIVE: CASE EVENT DATE: 2019
